FAERS Safety Report 8542483-1 (Version None)
Quarter: 2012Q3

REPORT INFORMATION
  Report Type: 
  Country: None (occurrence: None)
  Receive Date: 20120726
  Receipt Date: 20111228
  Transmission Date: 20120928
  Serious: Yes (Hospitalization)
  Sender: FDA-Public Use
  Company Number: US-ASTRAZENECA-2010SE00666

PATIENT
  Age: 41 Year
  Sex: Male
  Weight: 93 kg

DRUGS (24)
  1. ABILIFY [Concomitant]
     Dates: start: 20040101
  2. EFFEXOR XR [Concomitant]
     Dates: start: 20030823
  3. PROMETH/COD [Concomitant]
     Dosage: 6.25 - 10
     Dates: start: 20040105
  4. ALBUTEROL [Concomitant]
     Dates: start: 20031219
  5. METOCLOPRAM [Concomitant]
     Dates: start: 20040216
  6. CLONIDINE [Concomitant]
     Dates: start: 20030823
  7. LITHOBID [Concomitant]
     Dates: start: 20030823
  8. GEODON [Concomitant]
     Dates: start: 20040101
  9. DEPAKOTE [Concomitant]
     Dates: start: 20031023
  10. TRAZODONE HYDROCHLORIDE [Concomitant]
     Dates: start: 20040211
  11. ZYPREXA [Concomitant]
     Dates: start: 20040101
  12. NEXIUM [Concomitant]
     Route: 048
     Dates: start: 20030819
  13. SEROQUEL [Suspect]
     Route: 048
     Dates: start: 20040101, end: 20070101
  14. LOVASTATIN [Concomitant]
     Dates: start: 20071127
  15. NIFEDIPINE [Concomitant]
     Dates: start: 20040102
  16. LITHIUM CARBONATE [Concomitant]
     Dates: start: 20040101
  17. PROZAC [Concomitant]
     Dates: start: 20080101
  18. WELLBUTRIN [Concomitant]
     Dates: start: 20030823
  19. LONOX [Concomitant]
     Dates: start: 20040310
  20. BUPROPION HCL [Concomitant]
     Dates: start: 20040427
  21. SEROQUEL [Suspect]
     Indication: BIPOLAR DISORDER
     Dosage: 100 MG TO 200 MG
     Route: 048
     Dates: start: 20030910
  22. CLOZARIL [Concomitant]
     Dates: start: 20040101
  23. HISTEX [Concomitant]
     Dates: start: 20031219
  24. NITROOUICK [Concomitant]
     Dates: start: 20040104

REACTIONS (1)
  - TYPE 2 DIABETES MELLITUS [None]
